FAERS Safety Report 9645761 (Version 1)
Quarter: 2013Q4

REPORT INFORMATION
  Report Type: Spontaneous
  Country: CA (occurrence: CA)
  Receive Date: 20131025
  Receipt Date: 20131025
  Transmission Date: 20140711
  Serious: Yes (Other)
  Sender: FDA-Public Use
  Company Number: CHPA2013US015833

PATIENT
  Sex: Female

DRUGS (2)
  1. BUCKLEY^S UNKNOWN [Suspect]
     Dosage: UNK, UNK
     Route: 048
  2. BUCKLEY^S UNKNOWN [Suspect]
     Dosage: UNK, UNK
     Route: 048

REACTIONS (2)
  - Bronchitis chronic [Unknown]
  - Drug ineffective [Unknown]
